FAERS Safety Report 9185082 (Version 2)
Quarter: 2013Q2

REPORT INFORMATION
  Report Type: Spontaneous
  Country: FR (occurrence: FR)
  Receive Date: 20130325
  Receipt Date: 20130404
  Transmission Date: 20140414
  Serious: Yes (Hospitalization)
  Sender: FDA-Public Use
  Company Number: FR-JNJFOC-20130308109

PATIENT
  Age: 76 Year
  Sex: Male

DRUGS (4)
  1. ZYTIGA [Suspect]
     Indication: PROSTATE CANCER
     Route: 048
     Dates: start: 20121102, end: 20121126
  2. ZANIDIP [Concomitant]
     Route: 065
  3. TOPALGIC [Concomitant]
     Route: 065
  4. DAFALGAN [Concomitant]
     Route: 065

REACTIONS (4)
  - Fluid retention [Recovered/Resolved]
  - Pleural effusion [Unknown]
  - Sodium retention [Recovered/Resolved]
  - Cardiac hypertrophy [Unknown]
